FAERS Safety Report 14848266 (Version 1)
Quarter: 2018Q2

REPORT INFORMATION
  Report Type: Spontaneous
  Country: US (occurrence: US)
  Receive Date: 20180504
  Receipt Date: 20180504
  Transmission Date: 20180711
  Serious: No
  Sender: FDA-Public Use
  Company Number: US-GALDERMA-US17011306

PATIENT
  Sex: Male

DRUGS (3)
  1. PROACTIV GREEN TEA MOISTURIZER [Concomitant]
     Active Substance: COSMETICS
     Route: 061
     Dates: start: 20170806, end: 20170811
  2. PROACTIV MD DEEP CLEANSING FACE WASH [Concomitant]
     Active Substance: COSMETICS
     Route: 061
     Dates: start: 20170806, end: 20170811
  3. PROACTIV MD ADAPALENE ACNE TREATMENT [Suspect]
     Active Substance: ADAPALENE
     Indication: PRODUCT USED FOR UNKNOWN INDICATION
     Dosage: 0.1%
     Route: 061
     Dates: start: 20170806, end: 20170811

REACTIONS (1)
  - Dry skin [Recovered/Resolved]

NARRATIVE: CASE EVENT DATE: 20170808
